FAERS Safety Report 17149501 (Version 1)
Quarter: 2019Q4

REPORT INFORMATION
  Report Type: Spontaneous
  Country: US (occurrence: US)
  Receive Date: 20191213
  Receipt Date: 20191213
  Transmission Date: 20200122
  Serious: Yes (Other)
  Sender: FDA-Public Use
  Company Number: US-HORIZON-ACT-0335-2019

PATIENT
  Age: 35 Year
  Sex: Male

DRUGS (1)
  1. ACTIMMUNE [Suspect]
     Active Substance: INTERFERON GAMMA-1B
     Indication: PRODUCT USED FOR UNKNOWN INDICATION
     Dosage: 90?G
     Dates: start: 20140320

REACTIONS (3)
  - Anal fistula repair [Recovered/Resolved]
  - Crohn^s disease [Unknown]
  - Anal fistula [Recovered/Resolved]
